FAERS Safety Report 10234254 (Version 1)
Quarter: 2014Q2

REPORT INFORMATION
  Report Type: Spontaneous
  Country: US (occurrence: US)
  Receive Date: 20140612
  Receipt Date: 20140612
  Transmission Date: 20141212
  Serious: Yes (Other)
  Sender: FDA-Public Use
  Company Number: CHPA2014US007921

PATIENT
  Age: 51 Year
  Sex: Female

DRUGS (3)
  1. VOLTAREN GEL [Suspect]
     Indication: ARTHRALGIA
     Dosage: 4 G, UNK
     Route: 061
  2. VOLTAREN GEL [Suspect]
     Indication: OFF LABEL USE
  3. CELEBREX [Concomitant]
     Route: 065

REACTIONS (5)
  - Arthritis [Not Recovered/Not Resolved]
  - Drug ineffective for unapproved indication [Unknown]
  - Expired product administered [Unknown]
  - Drug administered at inappropriate site [Unknown]
  - Wrong technique in drug usage process [Unknown]
